FAERS Safety Report 19704939 (Version 6)
Quarter: 2022Q4

REPORT INFORMATION
  Report Type: Report from Study
  Country: EG (occurrence: EG)
  Receive Date: 20210816
  Receipt Date: 20221027
  Transmission Date: 20230113
  Serious: Yes (Other)
  Sender: FDA-Public Use
  Company Number: EG-NOVARTISPH-NVSC2021EG180966

PATIENT
  Age: 6 Year
  Sex: Male
  Weight: 19 kg

DRUGS (7)
  1. OMNITROPE [Suspect]
     Active Substance: SOMATROPIN
     Indication: Growth hormone deficiency
     Dosage: 0.6 MG, QD (CONCENTRATION: 10 MG/1.5 ML)
     Route: 058
     Dates: start: 20210608
  2. OMNITROPE [Suspect]
     Active Substance: SOMATROPIN
     Dosage: 0.6 MG, QD (CONCENTRATION: 10 MG/1.5 ML)
     Route: 058
  3. OMNITROPE [Suspect]
     Active Substance: SOMATROPIN
     Dosage: 0.6 MG, QD (CONCENTRATION: 5 MG/1.5 ML)
     Route: 058
  4. CORDARONE [Concomitant]
     Active Substance: AMIODARONE HYDROCHLORIDE
     Indication: Cardiac disorder
     Dosage: 0.5 DOSAGE FORM, QD
     Route: 048
     Dates: start: 2020
  5. ZINC [Concomitant]
     Active Substance: ZINC
     Indication: Malnutrition
     Dosage: 5 CM, QD
     Route: 048
     Dates: start: 202011
  6. VIDROP [Concomitant]
     Indication: Malnutrition
     Dosage: ONE DROPPER, QD
     Route: 048
     Dates: start: 202011
  7. ELBAVIT [Concomitant]
     Indication: Product used for unknown indication
     Dosage: 5 CM, QD
     Route: 065

REACTIONS (8)
  - Heart rate increased [Recovered/Resolved]
  - Medication error [Not Recovered/Not Resolved]
  - Device issue [Not Recovered/Not Resolved]
  - Product availability issue [Not Recovered/Not Resolved]
  - Wrong device used [Not Recovered/Not Resolved]
  - Wrong technique in device usage process [Recovered/Resolved]
  - Incorrect dose administered [Not Recovered/Not Resolved]
  - Device defective [Not Recovered/Not Resolved]

NARRATIVE: CASE EVENT DATE: 20210608
